FAERS Safety Report 9628306 (Version 1)
Quarter: 2013Q4

REPORT INFORMATION
  Report Type: Spontaneous
  Country: NL (occurrence: NL)
  Receive Date: 20131017
  Receipt Date: 20131017
  Transmission Date: 20140711
  Serious: Yes (Hospitalization)
  Sender: FDA-Public Use
  Company Number: NL-RANBAXY-2013R1-74197

PATIENT
  Age: 53 Year
  Sex: Male

DRUGS (1)
  1. AMOXICILLIN-CLAVULANIC ACID [Suspect]
     Indication: ERYSIPELAS
     Dosage: 500/125 MG THREE TIMES DAILY
     Route: 065

REACTIONS (1)
  - Acute psychosis [Recovered/Resolved]
